FAERS Safety Report 6028738-3 (Version None)
Quarter: 2009Q1

REPORT INFORMATION
  Report Type: 
  Country: None (occurrence: None)
  Receive Date: 20090105
  Receipt Date: 20090105
  Transmission Date: 20090719
  Serious: No
  Sender: FDA-Public Use
  Company Number: None

PATIENT
  Age: 59 Year
  Sex: Female
  Weight: 42.32 kg

DRUGS (1)
  1. VARENICLINE [Suspect]
     Dates: start: 20081006, end: 20081020

REACTIONS (2)
  - ANXIETY [None]
  - INSOMNIA [None]
